FAERS Safety Report 7569735-6 (Version None)
Quarter: 2011Q2

REPORT INFORMATION
  Report Type: 
  Country: None (occurrence: None)
  Receive Date: 20110617
  Receipt Date: 20110613
  Transmission Date: 20111010
  Serious: Yes (Hospitalization, Disabling)
  Sender: FDA-Public Use
  Company Number: 2007-152597-NL

PATIENT
  Age: 23 Year
  Sex: Female
  Weight: 73.9 kg

DRUGS (3)
  1. NEXIUM [Concomitant]
  2. NUVARING [Suspect]
     Indication: CONTRACEPTION
     Dosage: ;VAG
     Route: 067
     Dates: start: 20050801
  3. ORTHO EVRA [Suspect]
     Indication: PRODUCT USED FOR UNKNOWN INDICATION
     Dosage: ;TDER
     Route: 062
     Dates: start: 20030301

REACTIONS (37)
  - PERICARDIAL EFFUSION [None]
  - DYSLIPIDAEMIA [None]
  - TREATMENT NONCOMPLIANCE [None]
  - HYPOCOAGULABLE STATE [None]
  - MUSCLE STRAIN [None]
  - ECONOMIC PROBLEM [None]
  - MAJOR DEPRESSION [None]
  - CONGESTIVE CARDIOMYOPATHY [None]
  - INTERMITTENT CLAUDICATION [None]
  - ILIAC ARTERY OCCLUSION [None]
  - ROAD TRAFFIC ACCIDENT [None]
  - COGNITIVE DISORDER [None]
  - DEPRESSION [None]
  - PROTEIN S DEFICIENCY [None]
  - ABORTION INDUCED [None]
  - ELECTROCARDIOGRAM ST SEGMENT ELEVATION [None]
  - REGURGITATION [None]
  - PERIPHERAL VASCULAR DISORDER [None]
  - PAIN IN EXTREMITY [None]
  - CORONARY ARTERY OCCLUSION [None]
  - EJECTION FRACTION DECREASED [None]
  - TRICUSPID VALVE INCOMPETENCE [None]
  - POST-TRAUMATIC STRESS DISORDER [None]
  - CORONARY ARTERY THROMBOSIS [None]
  - CONTUSION [None]
  - MATERNAL DRUGS AFFECTING FOETUS [None]
  - MITRAL VALVE INCOMPETENCE [None]
  - DILATATION VENTRICULAR [None]
  - PANIC DISORDER [None]
  - DYSTHYMIC DISORDER [None]
  - COUGH [None]
  - TACHYCARDIA [None]
  - ACUTE MYOCARDIAL INFARCTION [None]
  - UTERINE DILATION AND CURETTAGE [None]
  - PREGNANCY WITH CONTRACEPTIVE DEVICE [None]
  - OEDEMA PERIPHERAL [None]
  - HAEMATOMA [None]
